FAERS Safety Report 8248111-7 (Version None)
Quarter: 2012Q1

REPORT INFORMATION
  Report Type: 
  Country: None (occurrence: None)
  Receive Date: 20120330
  Receipt Date: 20120323
  Transmission Date: 20120608
  Serious: Yes (Hospitalization)
  Sender: FDA-Public Use
  Company Number: US-BAYER-2011-077680

PATIENT
  Age: 33 Year
  Sex: Female
  Weight: 104.31 kg

DRUGS (6)
  1. CLONAZEPAM [Concomitant]
     Indication: ANXIETY
     Dosage: UNK
     Dates: start: 20000101
  2. TRAZODONE HCL [Concomitant]
     Indication: INSOMNIA
     Dosage: UNK
     Dates: start: 20000101
  3. DROSPIRENONE AND ETHINYL ESTRADIOL [Suspect]
  4. DROSPIRENONE AND ETHINYL ESTRADIOL [Suspect]
     Indication: PREMENSTRUAL SYNDROME
     Dosage: UNK
     Route: 048
     Dates: start: 20090422, end: 20090816
  5. IBUPROFEN [Concomitant]
     Indication: PAIN IN EXTREMITY
     Dosage: UNK
     Dates: start: 20090701
  6. SERTRALINE HYDROCHLORIDE [Concomitant]
     Indication: DEPRESSION
     Dosage: UNK
     Dates: start: 20000101

REACTIONS (12)
  - PAIN [None]
  - ARTHRALGIA [None]
  - PULMONARY EMBOLISM [None]
  - PAIN IN EXTREMITY [None]
  - DEEP VEIN THROMBOSIS [None]
  - ANXIETY [None]
  - INJURY [None]
  - DYSPNOEA [None]
  - PHLEBITIS [None]
  - ANHEDONIA [None]
  - OEDEMA PERIPHERAL [None]
  - ASTHENIA [None]
